FAERS Safety Report 7198957-1 (Version None)
Quarter: 2010Q4

REPORT INFORMATION
  Report Type: 
  Country: None (occurrence: None)
  Receive Date: 20101227
  Receipt Date: 20101217
  Transmission Date: 20110411
  Serious: Yes (Death, Hospitalization)
  Sender: FDA-Public Use
  Company Number: NO-RANBAXY-2010US-40574

PATIENT
  Age: 82 Year
  Sex: Female

DRUGS (3)
  1. SIMVASTATIN [Suspect]
     Indication: BLOOD CHOLESTEROL
     Dosage: 10 MG, QD
     Route: 065
  2. WARFARIN SODIUM [Suspect]
     Indication: DEEP VEIN THROMBOSIS
     Dosage: 2.5 MG, QD
     Route: 065
  3. WARFARIN SODIUM [Suspect]
     Indication: PULMONARY EMBOLISM

REACTIONS (3)
  - CEREBRAL HAEMORRHAGE [None]
  - DRUG INTERACTION [None]
  - INTERNATIONAL NORMALISED RATIO INCREASED [None]
